FAERS Safety Report 8836756 (Version 3)
Quarter: 2012Q4

REPORT INFORMATION
  Report Type: 
  Country: US (occurrence: US)
  Receive Date: 20121012
  Receipt Date: 20121129
  Transmission Date: 20130627
  Serious: Yes (Hospitalization)
  Sender: FDA-Public Use
  Company Number: US-BIOGENIDEC-2012BI041866

PATIENT
  Sex: Female

DRUGS (2)
  1. AVONEX [Suspect]
     Indication: MULTIPLE SCLEROSIS
     Route: 030
     Dates: start: 20120501, end: 201209
  2. AVONEX [Suspect]
     Indication: MULTIPLE SCLEROSIS
     Route: 030

REACTIONS (7)
  - Vision blurred [Recovered/Resolved]
  - Eye disorder [Recovered/Resolved]
  - Multiple sclerosis relapse [Recovered/Resolved]
  - Back pain [Unknown]
  - Diplopia [Unknown]
  - Dizziness [Unknown]
  - Headache [Unknown]
